FAERS Safety Report 9359211 (Version 1)
Quarter: 2013Q2

REPORT INFORMATION
  Report Type: Spontaneous
  Country: US (occurrence: US)
  Receive Date: 20130620
  Receipt Date: 20130620
  Transmission Date: 20140414
  Serious: No
  Sender: FDA-Public Use
  Company Number: US-009507513-1306USA009549

PATIENT
  Age: 73 Year
  Sex: Female
  Weight: 62.59 kg

DRUGS (5)
  1. MIRALAX [Suspect]
     Indication: BOWEL PREPARATION
     Dosage: 7 DF, Q20M
     Route: 048
     Dates: start: 20130604
  2. MIRALAX [Suspect]
     Dosage: 7 DF, Q20M
     Route: 048
     Dates: start: 20130605
  3. TOPROL XL TABLETS [Concomitant]
     Indication: HYPERTENSION
     Dosage: UNK, UNKNOWN
  4. XANAX [Concomitant]
     Indication: INSOMNIA
     Dosage: 1 MG, PRN
  5. PREDNISONE [Concomitant]
     Indication: MUSCLE INJURY
     Dosage: 1 MG, UNK

REACTIONS (3)
  - Abdominal distension [Not Recovered/Not Resolved]
  - Prescribed overdose [Unknown]
  - Off label use [Unknown]
